FAERS Safety Report 14600552 (Version 1)
Quarter: 2018Q1

REPORT INFORMATION
  Report Type: Spontaneous
  Country: US (occurrence: US)
  Receive Date: 20180305
  Receipt Date: 20180305
  Transmission Date: 20180509
  Serious: No
  Sender: FDA-Public Use
  Company Number: US-GLAXOSMITHKLINE-US2018031037

PATIENT
  Age: 56 Year
  Sex: Male

DRUGS (1)
  1. NICODERM CQ [Suspect]
     Active Substance: NICOTINE
     Indication: SMOKING CESSATION THERAPY
     Dosage: UNK
     Dates: start: 20180101

REACTIONS (5)
  - Application site pruritus [Unknown]
  - Application site irritation [Unknown]
  - Application site inflammation [Unknown]
  - Application site warmth [Unknown]
  - Application site erythema [Unknown]

NARRATIVE: CASE EVENT DATE: 20180103
